FAERS Safety Report 12358331 (Version 1)
Quarter: 2016Q2

REPORT INFORMATION
  Report Type: Spontaneous
  Country: US (occurrence: None)
  Receive Date: 20160511
  Receipt Date: 20160511
  Transmission Date: 20160815
  Serious: Yes (Other)
  Sender: FDA-Public Use
  Company Number: None

PATIENT
  Age: 65 Year
  Sex: Female
  Weight: 117.94 kg

DRUGS (1)
  1. HYDROCHLOROTHIAZIDE 25 MG [Suspect]
     Active Substance: HYDROCHLOROTHIAZIDE
     Indication: HYPERTENSION
     Dosage: 1 PILL
     Route: 048
     Dates: start: 20151212, end: 20160101

REACTIONS (6)
  - Chills [None]
  - Presyncope [None]
  - Dehydration [None]
  - Blood urine present [None]
  - Muscular weakness [None]
  - Muscle spasms [None]

NARRATIVE: CASE EVENT DATE: 20160102
